FAERS Safety Report 8806273 (Version 3)
Quarter: 2013Q3

REPORT INFORMATION
  Report Type: Spontaneous
  Country: US (occurrence: US)
  Receive Date: 20120925
  Receipt Date: 20130906
  Transmission Date: 20140515
  Serious: Yes (Death, Hospitalization, Disabling, Other)
  Sender: FDA-Public Use
  Company Number: US-009507513-1111USA02469

PATIENT
  Sex: Female
  Weight: 56.25 kg

DRUGS (3)
  1. FOSAMAX [Suspect]
     Indication: OSTEOPENIA
     Dosage: 70 MG, QW
     Route: 048
     Dates: start: 2003, end: 200711
  2. FOSAMAX [Suspect]
     Indication: OSTEOPOROSIS
  3. ACTIVELLA [Concomitant]
     Indication: HORMONE REPLACEMENT THERAPY

REACTIONS (46)
  - Death [Fatal]
  - Tongue operation [Unknown]
  - Polypectomy [Unknown]
  - Biopsy [Unknown]
  - Osteomyelitis [Unknown]
  - Pathological fracture [Unknown]
  - Osteoradionecrosis [Unknown]
  - Postmenopausal haemorrhage [Unknown]
  - Salpingo-oophorectomy bilateral [Unknown]
  - Gastrostomy [Unknown]
  - Surgery [Unknown]
  - Hysterectomy [Unknown]
  - Jaw operation [Unknown]
  - Dysphagia [Unknown]
  - Osteonecrosis of jaw [Not Recovered/Not Resolved]
  - Hypertension [Unknown]
  - Hypercholesterolaemia [Unknown]
  - Hypothyroidism [Unknown]
  - Fungal infection [Unknown]
  - Pharyngeal disorder [Unknown]
  - Sinus disorder [Unknown]
  - Increased tendency to bruise [Unknown]
  - Loose tooth [Unknown]
  - Colon adenoma [Unknown]
  - Dental caries [Unknown]
  - Change of bowel habit [Unknown]
  - Rectal haemorrhage [Unknown]
  - Dysplasia [Unknown]
  - Radiation injury [Unknown]
  - Impaired healing [Unknown]
  - Dental caries [Unknown]
  - Dysarthria [Recovering/Resolving]
  - Excessive granulation tissue [Recovering/Resolving]
  - Infection [Unknown]
  - Device occlusion [Unknown]
  - Dermatitis contact [Unknown]
  - Radiation fibrosis [Unknown]
  - Ear tube removal [Unknown]
  - Tympanic membrane perforation [Unknown]
  - Scar [Unknown]
  - Hyperthyroidism [Unknown]
  - Impaired gastric emptying [Unknown]
  - Erythema [Unknown]
  - Constipation [Unknown]
  - Nausea [Recovering/Resolving]
  - Vomiting [Recovered/Resolved]
